FAERS Safety Report 19111350 (Version 1)
Quarter: 2021Q2

REPORT INFORMATION
  Report Type: Spontaneous
  Country: US (occurrence: US)
  Receive Date: 20210408
  Receipt Date: 20210408
  Transmission Date: 20210717
  Serious: No
  Sender: FDA-Public Use
  Company Number: US-EMD SERONO-9227387

PATIENT
  Sex: Female

DRUGS (5)
  1. LEMTRADA [Suspect]
     Active Substance: ALEMTUZUMAB
     Dosage: FOUR TIMES A DAY
     Route: 042
     Dates: start: 20180713, end: 20180713
  2. LEMTRADA [Suspect]
     Active Substance: ALEMTUZUMAB
     Dosage: FOUR TIMES A DAY
     Route: 042
     Dates: start: 20180716, end: 20180718
  3. LEMTRADA [Suspect]
     Active Substance: ALEMTUZUMAB
     Indication: MULTIPLE SCLEROSIS
     Dosage: FOUR TIMES A DAY
     Route: 042
     Dates: start: 20180709, end: 20180709
  4. MAVENCLAD [Suspect]
     Active Substance: CLADRIBINE
     Indication: MULTIPLE SCLEROSIS
  5. LEMTRADA [Suspect]
     Active Substance: ALEMTUZUMAB
     Route: 042
     Dates: end: 20190717

REACTIONS (3)
  - Drug ineffective [Unknown]
  - Gait disturbance [Unknown]
  - Foot fracture [Unknown]
